FAERS Safety Report 6966285-2 (Version None)
Quarter: 2010Q3

REPORT INFORMATION
  Report Type: 
  Country: None (occurrence: None)
  Receive Date: 20100903
  Receipt Date: 20100820
  Transmission Date: 20110219
  Serious: Yes (Hospitalization, Other)
  Sender: FDA-Public Use
  Company Number: PHHY2010US55418

PATIENT
  Sex: Female

DRUGS (3)
  1. DIOVAN [Suspect]
     Indication: BLOOD PRESSURE
  2. PREDNISONE [Suspect]
  3. LEVAQUIN [Suspect]

REACTIONS (9)
  - BLOOD PRESSURE INCREASED [None]
  - DEPRESSION [None]
  - HYPERSENSITIVITY [None]
  - INSOMNIA [None]
  - NERVE INJURY [None]
  - NERVOUSNESS [None]
  - RASH [None]
  - SURGERY [None]
  - WRONG TECHNIQUE IN DRUG USAGE PROCESS [None]
